FAERS Safety Report 7359589-5 (Version None)
Quarter: 2011Q1

REPORT INFORMATION
  Report Type: 
  Country: None (occurrence: None)
  Receive Date: 20110317
  Receipt Date: 20100304
  Transmission Date: 20110831
  Serious: Yes (Other)
  Sender: FDA-Public Use
  Company Number: US-PFIZER INC-2010029212

PATIENT
  Sex: Female
  Weight: 68.027 kg

DRUGS (2)
  1. AMLODIPINE BESYLATE [Suspect]
  2. AMLODIPINE BESYLATE [Suspect]
     Indication: BLOOD PRESSURE
     Dates: start: 20091118, end: 20090101

REACTIONS (4)
  - BLOOD PRESSURE INADEQUATELY CONTROLLED [None]
  - NAUSEA [None]
  - HYPERHIDROSIS [None]
  - INSOMNIA [None]
